FAERS Safety Report 16298593 (Version 1)
Quarter: 2019Q2

REPORT INFORMATION
  Report Type: Spontaneous
  Country: DE (occurrence: DE)
  Receive Date: 20190510
  Receipt Date: 20190510
  Transmission Date: 20190711
  Serious: Yes (Hospitalization, Other)
  Sender: FDA-Public Use
  Company Number: DE-AUROBINDO-AUR-APL-2019-025108

PATIENT

DRUGS (11)
  1. OXAZEPAM. [Concomitant]
     Active Substance: OXAZEPAM
     Indication: PRODUCT USED FOR UNKNOWN INDICATION
     Dosage: UNK
     Route: 065
     Dates: start: 20180525
  2. PRADAXA [Concomitant]
     Active Substance: DABIGATRAN ETEXILATE MESYLATE
     Indication: PULMONARY EMBOLISM
     Dosage: 75 MILLIGRAM, ONCE A DAY
     Route: 048
     Dates: start: 20170715
  3. LOSARTAN. [Concomitant]
     Active Substance: LOSARTAN
     Indication: HYPERTENSION
     Dosage: 50 MILLIGRAM, ONCE A DAY
     Route: 048
  4. IBANDRONIC ACID CONCENTRATE FOR SOLUTION FOR INFUSION [Suspect]
     Active Substance: IBANDRONIC ACID
     Indication: METASTASES TO BONE
     Dosage: 6 MILLIGRAM 21 DAY
     Route: 042
     Dates: start: 20170928
  5. TRASTUZUMAB. [Suspect]
     Active Substance: TRASTUZUMAB
     Indication: HER-2 POSITIVE BREAST CANCER
     Dosage: 6 MILLIGRAM/KILOGRAM (DATE OF MOST RECENT DOSE OF TRASTUZUMAB PRIOR TO SAE: 17/MAY/2018)
     Route: 041
     Dates: start: 20171109
  6. HYDROCHLOROTHIAZIDE. [Concomitant]
     Active Substance: HYDROCHLOROTHIAZIDE
     Indication: HYPERTENSION
     Dosage: 25 MILLIGRAM, ONCE A DAY
     Route: 048
  7. FORADIL [Concomitant]
     Active Substance: FORMOTEROL FUMARATE
     Indication: PULMONARY EMBOLISM
     Dosage: 2 UNK, ONCE A DAY
     Route: 055
     Dates: start: 20170630
  8. METAMIZOLE [Concomitant]
     Active Substance: METAMIZOLE
     Indication: PAIN
     Dosage: UNK
     Route: 065
     Dates: start: 20180525
  9. PERTUZUMAB. [Suspect]
     Active Substance: PERTUZUMAB
     Indication: HER-2 POSITIVE BREAST CANCER
     Dosage: 420 MILLIGRAM (LAST DOSE PRIOR TO THE EVENTS POLYNEUROPATHY)
     Route: 042
     Dates: start: 20171108, end: 20180405
  10. LORAZEPAM. [Concomitant]
     Active Substance: LORAZEPAM
     Indication: PRODUCT USED FOR UNKNOWN INDICATION
     Dosage: UNK
     Route: 065
     Dates: start: 20180525
  11. TORASEMIDE [Concomitant]
     Active Substance: TORSEMIDE
     Indication: PRODUCT USED FOR UNKNOWN INDICATION
     Dosage: UNK
     Route: 065

REACTIONS (8)
  - Fall [Unknown]
  - Haematoma [Unknown]
  - Dizziness [Recovered/Resolved]
  - Metastases to central nervous system [Recovered/Resolved]
  - Hemiparesis [Recovered/Resolved]
  - Loss of consciousness [Unknown]
  - Transient ischaemic attack [Not Recovered/Not Resolved]
  - Polyneuropathy [Not Recovered/Not Resolved]

NARRATIVE: CASE EVENT DATE: 20180416
